FAERS Safety Report 7460939-X (Version None)
Quarter: 2011Q2

REPORT INFORMATION
  Report Type: 
  Country: None (occurrence: None)
  Receive Date: 20110505
  Receipt Date: 20080311
  Transmission Date: 20111010
  Serious: Yes (Other)
  Sender: FDA-Public Use
  Company Number: US-BAYER-200816819NA

PATIENT
  Age: 70 Year
  Sex: Female
  Weight: 68.027 kg

DRUGS (6)
  1. TRASYLOL [Suspect]
     Indication: CORONARY ARTERY BYPASS
     Dosage: UNK
  2. LISINOPRIL [Concomitant]
  3. HEPARIN [Concomitant]
  4. TOPROL-XL [Concomitant]
  5. PLAVIX [Concomitant]
  6. NEURONTIN [Concomitant]

REACTIONS (7)
  - CEREBROVASCULAR ACCIDENT [None]
  - ANHEDONIA [None]
  - ILL-DEFINED DISORDER [None]
  - UNEVALUABLE EVENT [None]
  - INJURY [None]
  - EMOTIONAL DISTRESS [None]
  - PAIN [None]
